FAERS Safety Report 17004499 (Version 2)
Quarter: 2020Q1

REPORT INFORMATION
  Report Type: Spontaneous
  Country: US (occurrence: US)
  Receive Date: 20191107
  Receipt Date: 20200110
  Transmission Date: 20200409
  Serious: No
  Sender: FDA-Public Use
  Company Number: US-PFIZER INC-2019478626

PATIENT
  Age: 90 Year
  Sex: Female
  Weight: 48.73 kg

DRUGS (9)
  1. XGEVA [Concomitant]
     Active Substance: DENOSUMAB
     Dosage: UNK(120MG/1.7 VIAL)
  2. SIMVASTATIN. [Concomitant]
     Active Substance: SIMVASTATIN
     Dosage: UNK
  3. VITAMIN D3 [Concomitant]
     Active Substance: CHOLECALCIFEROL
     Dosage: UNK(VITAMIN D3 10000 UNIT CAPSULE)
  4. IBRANCE [Suspect]
     Active Substance: PALBOCICLIB
     Indication: BREAST CANCER
     Dosage: 125 MG, CYCLIC(DAILY FOR 21 DAYS, THEN 7 DAYS OFF/125MG ORALLY)
     Route: 048
     Dates: start: 20191001
  5. WARFARIN SODIUM. [Concomitant]
     Active Substance: WARFARIN SODIUM
     Dosage: 10 MG, UNK
  6. FASLODEX [Concomitant]
     Active Substance: FULVESTRANT
     Dosage: UNK (250 MG/5ML SYRINGE)
  7. CALCIUM + VITAMIN D [CALCIUM CITRATE;COLECALCIFEROL] [Concomitant]
     Dosage: UNK
  8. IBRANCE [Suspect]
     Active Substance: PALBOCICLIB
     Indication: BREAST CANCER FEMALE
     Dosage: 125 MG, CYCLIC(DAILY FOR 21 OUT OF 28 DAYS)
     Route: 048
     Dates: start: 20191001, end: 201910
  9. ANASTROZOLE. [Concomitant]
     Active Substance: ANASTROZOLE
     Dosage: 1 MG, UNK(1MG TABLET)

REACTIONS (3)
  - Product dose omission [Unknown]
  - Cough [Recovering/Resolving]
  - White blood cell count decreased [Recovered/Resolved]

NARRATIVE: CASE EVENT DATE: 201910
